FAERS Safety Report 24032927 (Version 2)
Quarter: 2024Q3

REPORT INFORMATION
  Report Type: Spontaneous
  Country: US (occurrence: US)
  Receive Date: 20240701
  Receipt Date: 20240829
  Transmission Date: 20241016
  Serious: Yes (Other)
  Sender: GLAUKOS
  Company Number: US-GLK-002348

PATIENT
  Age: 31 Year
  Sex: Female

DRUGS (2)
  1. PHOTREXA [Suspect]
     Active Substance: RIBOFLAVIN 5^-PHOSPHATE SODIUM
     Indication: Product used for unknown indication
     Dosage: LEFT EYE
     Route: 047
     Dates: start: 20240502, end: 20240502
  2. PHOTREXA VISCOUS [Suspect]
     Active Substance: RIBOFLAVIN 5^-PHOSPHATE SODIUM
     Indication: Product used for unknown indication
     Dosage: LEFT EYE
     Route: 047
     Dates: start: 20240502, end: 20240502

REACTIONS (8)
  - Corneal scar [Unknown]
  - Corneal opacity [Unknown]
  - Corneal defect [Unknown]
  - Corneal thinning [Unknown]
  - Corneal oedema [Unknown]
  - Corneal opacity [Unknown]
  - Visual impairment [Unknown]
  - Impaired healing [Unknown]

NARRATIVE: CASE EVENT DATE: 20240507
